FAERS Safety Report 5201011-9 (Version None)
Quarter: 2007Q1

REPORT INFORMATION
  Report Type: 
  Country: None (occurrence: None)
  Receive Date: 20070108
  Receipt Date: 20061229
  Transmission Date: 20070707
  Serious: Yes (Hospitalization)
  Sender: FDA-Public Use
  Company Number: JP-JPN-A200605617

PATIENT
  Age: 77 Year
  Sex: Male

DRUGS (2)
  1. VALTREX [Suspect]
     Indication: HERPES ZOSTER
     Dosage: 1000MG THREE TIMES PER DAY
     Route: 048
     Dates: start: 20061216, end: 20061223
  2. ARASENA-A [Concomitant]
     Route: 062
     Dates: start: 20061212

REACTIONS (2)
  - LOSS OF CONSCIOUSNESS [None]
  - RENAL DISORDER [None]
